FAERS Safety Report 7568413-7 (Version None)
Quarter: 2011Q2

REPORT INFORMATION
  Report Type: 
  Country: None (occurrence: None)
  Receive Date: 20110623
  Receipt Date: 20110613
  Transmission Date: 20111010
  Serious: Yes (Hospitalization)
  Sender: FDA-Public Use
  Company Number: EG-ROCHE-782193

PATIENT
  Age: 32 Year
  Sex: Male

DRUGS (2)
  1. XELODA [Suspect]
     Dosage: FREQUENCY: DAILY
     Route: 048
  2. AVASTIN [Suspect]
     Route: 042

REACTIONS (1)
  - INTESTINAL PERFORATION [None]
